FAERS Safety Report 11109834 (Version 2)
Quarter: 2015Q3

REPORT INFORMATION
  Report Type: Report from Study
  Country: CO (occurrence: CO)
  Receive Date: 20150513
  Receipt Date: 20150710
  Transmission Date: 20151125
  Serious: Yes (Death, Hospitalization, Other)
  Sender: FDA-Public Use
  Company Number: CO-ABBVIE-15K-036-1386381-00

PATIENT
  Age: 63 Year
  Sex: Female

DRUGS (3)
  1. AMBAL [Concomitant]
     Indication: PRODUCT USED FOR UNKNOWN INDICATION
  2. BELOSOL [Concomitant]
     Indication: PRODUCT USED FOR UNKNOWN INDICATION
  3. HUMIRA [Suspect]
     Active Substance: ADALIMUMAB
     Indication: RHEUMATOID ARTHRITIS
     Route: 058
     Dates: start: 20150121, end: 20150318

REACTIONS (8)
  - Encephalopathy [Not Recovered/Not Resolved]
  - Malaise [Not Recovered/Not Resolved]
  - Death [Fatal]
  - Respiratory failure [Unknown]
  - Pneumonia [Unknown]
  - Faecal incontinence [Not Recovered/Not Resolved]
  - Amnesia [Unknown]
  - Tuberculosis [Unknown]

NARRATIVE: CASE EVENT DATE: 2015
